FAERS Safety Report 7938402-9 (Version None)
Quarter: 2011Q4

REPORT INFORMATION
  Report Type: 
  Country: None (occurrence: None)
  Receive Date: 20111123
  Receipt Date: 20111122
  Transmission Date: 20120403
  Serious: No
  Sender: FDA-Public Use
  Company Number: US-PFIZER INC-2011282758

PATIENT
  Sex: Male
  Weight: 90.7 kg

DRUGS (4)
  1. NEXIUM [Concomitant]
     Dosage: UNK
  2. LIPITOR [Suspect]
     Indication: BLOOD CHOLESTEROL INCREASED
     Dosage: 20 MG, 1X/DAY
     Route: 048
     Dates: start: 20000101, end: 20060101
  3. AMLODIPINE [Concomitant]
     Indication: HYPERTENSION
     Dosage: 10 MG, 1X/DAY
  4. LIPITOR [Suspect]
     Dosage: 80 MG, 1X/DAY
     Route: 048
     Dates: start: 20060101

REACTIONS (5)
  - PAIN [None]
  - BLOOD CHOLESTEROL INCREASED [None]
  - NECK INJURY [None]
  - ACCIDENT [None]
  - BACK INJURY [None]
